FAERS Safety Report 16530415 (Version 1)
Quarter: 2019Q3

REPORT INFORMATION
  Report Type: Spontaneous
  Country: DK (occurrence: DK)
  Receive Date: 20190704
  Receipt Date: 20190704
  Transmission Date: 20191004
  Serious: Yes (Hospitalization, Other)
  Sender: FDA-Public Use
  Company Number: DK-LUPIN PHARMACEUTICALS INC.-2019-04003

PATIENT
  Age: 4 Decade
  Sex: Female

DRUGS (1)
  1. CEFTRIAXONE. [Suspect]
     Active Substance: CEFTRIAXONE
     Indication: SALMONELLOSIS
     Dosage: 02 GRAM, QD
     Route: 042

REACTIONS (3)
  - Exposure during pregnancy [Unknown]
  - Typhoid fever [Unknown]
  - Drug resistance [Unknown]
